FAERS Safety Report 19371189 (Version 2)
Quarter: 2021Q2

REPORT INFORMATION
  Report Type: Report from Study
  Country: KR (occurrence: KR)
  Receive Date: 20210604
  Receipt Date: 20210612
  Transmission Date: 20210717
  Serious: Yes (Other)
  Sender: FDA-Public Use
  Company Number: KR-AMGEN-KORCT2021084257

PATIENT
  Age: 11 Year
  Sex: Male

DRUGS (86)
  1. FILGRASTIM [Suspect]
     Active Substance: FILGRASTIM
     Indication: PRODUCT USED FOR UNKNOWN INDICATION
     Dosage: UNK, QD (75)
     Route: 065
     Dates: start: 20170302, end: 20170302
  2. AMOXICILLIN. [Concomitant]
     Active Substance: AMOXICILLIN
     Indication: PRODUCT USED FOR UNKNOWN INDICATION
     Dosage: 4 UNK, QD
     Route: 065
     Dates: start: 20170324, end: 20170330
  3. BENZYDAMINE [Concomitant]
     Active Substance: BENZYDAMINE
     Indication: PRODUCT USED FOR UNKNOWN INDICATION
     Dosage: UNK, QD
     Route: 065
     Dates: start: 20170302
  4. CALCIUM FOLINATE [Concomitant]
     Active Substance: LEUCOVORIN CALCIUM
     Indication: PRODUCT USED FOR UNKNOWN INDICATION
     Dosage: 42 MILLIGRAM, QD
     Route: 065
     Dates: start: 20170312, end: 20170312
  5. CALCIUM FOLINATE [Concomitant]
     Active Substance: LEUCOVORIN CALCIUM
     Dosage: 84 MILLIGRAM, QD
     Route: 065
     Dates: start: 20170313, end: 20170313
  6. GRANISETRON [Concomitant]
     Active Substance: GRANISETRON
     Indication: PRODUCT USED FOR UNKNOWN INDICATION
     Dosage: 3 MILLIGRAM, QD
     Route: 065
     Dates: start: 20170311, end: 20170311
  7. HEPARIN [Concomitant]
     Active Substance: HEPARIN SODIUM
     Indication: PRODUCT USED FOR UNKNOWN INDICATION
     Dosage: 1 UNK, QD
     Route: 065
     Dates: start: 20170329, end: 20170403
  8. LEVOFLOXACIN. [Concomitant]
     Active Substance: LEVOFLOXACIN
     Indication: PRODUCT USED FOR UNKNOWN INDICATION
     Dosage: UNK, QD
     Route: 065
     Dates: start: 20170320
  9. METHOTREXATE. [Concomitant]
     Active Substance: METHOTREXATE
     Dosage: 2 UNK, QD
     Route: 065
     Dates: start: 20170318, end: 20170318
  10. MUPIROCIN. [Concomitant]
     Active Substance: MUPIROCIN
     Indication: PRODUCT USED FOR UNKNOWN INDICATION
     Dosage: UNK, QD
     Route: 065
     Dates: start: 20170315
  11. PALONOSETRON. [Concomitant]
     Active Substance: PALONOSETRON HYDROCHLORIDE
     Dosage: 1 MILLIGRAM, QD
     Route: 065
     Dates: start: 20170401, end: 20170401
  12. SODIUM BICARBONATE. [Concomitant]
     Active Substance: SODIUM BICARBONATE
     Dosage: UNK, QD
     Route: 065
     Dates: start: 20170315
  13. SODIUM BICARBONATE. [Concomitant]
     Active Substance: SODIUM BICARBONATE
     Dosage: 48 UNK, QD
     Route: 065
     Dates: start: 20170317, end: 20170317
  14. SODIUM BICARBONATE. [Concomitant]
     Active Substance: SODIUM BICARBONATE
     Dosage: 48 UNK, QD
     Route: 065
     Dates: start: 20170312, end: 20170316
  15. SODIUM BICARBONATE. [Concomitant]
     Active Substance: SODIUM BICARBONATE
     Dosage: 48 UNK, QD
     Route: 065
     Dates: start: 20170319, end: 20170323
  16. TEICOPLANIN [Concomitant]
     Active Substance: TEICOPLANIN
     Dosage: 800 MILLIGRAM, QD
     Route: 065
     Dates: start: 20170306, end: 20170306
  17. CALCIUM FOLINATE [Concomitant]
     Active Substance: LEUCOVORIN CALCIUM
     Dosage: 42 MILLIGRAM, QD
     Route: 065
     Dates: start: 20170324, end: 20170324
  18. CHLORPHENAMINE [Concomitant]
     Active Substance: CHLORPHENIRAMINE MALEATE
     Indication: PRODUCT USED FOR UNKNOWN INDICATION
     Dosage: 1 UNK, QD
     Route: 065
     Dates: start: 20170302, end: 20170303
  19. DOXORUBICIN [Concomitant]
     Active Substance: DOXORUBICIN
     Indication: PRODUCT USED FOR UNKNOWN INDICATION
     Dosage: 34 MILLIGRAM
     Route: 065
     Dates: start: 20170330, end: 20170402
  20. SODIUM BICARBONATE. [Concomitant]
     Active Substance: SODIUM BICARBONATE
     Dosage: 48 UNK, QD
     Route: 065
     Dates: start: 20170311, end: 20170311
  21. SODIUM CHLORIDE. [Concomitant]
     Active Substance: SODIUM CHLORIDE
     Dosage: 8.5 UNK, QD
     Route: 065
     Dates: start: 20170318, end: 20170318
  22. CALCIUM FOLINATE [Concomitant]
     Active Substance: LEUCOVORIN CALCIUM
     Dosage: 42 MILLIGRAM, QD
     Route: 065
     Dates: start: 20170319, end: 20170319
  23. DEXAMETHASONE. [Concomitant]
     Active Substance: DEXAMETHASONE
     Dosage: 1 UNK, QD
     Route: 065
     Dates: start: 20170330, end: 20170330
  24. EPINEPHRINE. [Concomitant]
     Active Substance: EPINEPHRINE
     Indication: PRODUCT USED FOR UNKNOWN INDICATION
     Dosage: UNK, QD
     Route: 065
     Dates: start: 20170405
  25. FLUOROMETHOLONE. [Concomitant]
     Active Substance: FLUOROMETHOLONE
     Indication: PRODUCT USED FOR UNKNOWN INDICATION
     Dosage: UNK, QD
     Route: 065
     Dates: start: 20170320
  26. FUROSEMIDE. [Concomitant]
     Active Substance: FUROSEMIDE
     Indication: PRODUCT USED FOR UNKNOWN INDICATION
     Dosage: 1 UNK, QD
     Route: 065
     Dates: start: 20170304, end: 20170304
  27. METHOTREXATE. [Concomitant]
     Active Substance: METHOTREXATE
     Indication: PRODUCT USED FOR UNKNOWN INDICATION
     Dosage: 2 UNK, QD
     Route: 065
     Dates: start: 20170311, end: 20170311
  28. PENTAMIDINE ISETHIONATE. [Concomitant]
     Active Substance: PENTAMIDINE ISETHIONATE
     Indication: PRODUCT USED FOR UNKNOWN INDICATION
     Dosage: 1 UNK, QD
     Dates: start: 20170320, end: 20170320
  29. PROPACETAMOL [Concomitant]
     Active Substance: PROPACETAMOL
     Indication: PRODUCT USED FOR UNKNOWN INDICATION
     Dosage: 1 UNK, QD
     Route: 065
     Dates: start: 20170320, end: 20170320
  30. SODIUM BICARBONATE. [Concomitant]
     Active Substance: SODIUM BICARBONATE
     Indication: PRODUCT USED FOR UNKNOWN INDICATION
     Dosage: 48 UNK, QD
     Route: 065
     Dates: start: 20170310
  31. SODIUM CHLORIDE. [Concomitant]
     Active Substance: SODIUM CHLORIDE
     Dosage: 8.5 UNK, QD
     Route: 065
     Dates: start: 20170310, end: 20170310
  32. URSODEOXYCHOLIC ACID [Concomitant]
     Active Substance: URSODIOL
     Dosage: 600 MILLIGRAM, QD
     Route: 065
     Dates: start: 20170322, end: 20170323
  33. ZINC SULFATE. [Concomitant]
     Active Substance: ZINC SULFATE
     Indication: PRODUCT USED FOR UNKNOWN INDICATION
     Dosage: 12 UNK, QD
     Route: 065
     Dates: start: 20170312, end: 20170312
  34. CALCIUM FOLINATE [Concomitant]
     Active Substance: LEUCOVORIN CALCIUM
     Dosage: 84 MILLIGRAM, QD
     Route: 065
     Dates: start: 20170320, end: 20170323
  35. CHLORHEXIDINE [Concomitant]
     Active Substance: CHLORHEXIDINE
     Indication: PRODUCT USED FOR UNKNOWN INDICATION
     Dosage: UNK, QD
     Route: 065
     Dates: start: 20170302
  36. CHLORPHENAMINE [Concomitant]
     Active Substance: CHLORPHENIRAMINE MALEATE
     Dosage: 2 UNK, QD
     Route: 065
     Dates: start: 20170302, end: 20170302
  37. MAGNESIUM SULFATE. [Concomitant]
     Active Substance: MAGNESIUM SULFATE
     Dosage: 10 UNK, QD
     Route: 065
     Dates: start: 20170330, end: 20170331
  38. ONDANSETRON [Concomitant]
     Active Substance: ONDANSETRON
     Indication: PRODUCT USED FOR UNKNOWN INDICATION
     Dosage: 8 MILLIGRAM, QD
     Route: 065
     Dates: start: 20170324, end: 20170324
  39. PALONOSETRON. [Concomitant]
     Active Substance: PALONOSETRON HYDROCHLORIDE
     Indication: PRODUCT USED FOR UNKNOWN INDICATION
     Dosage: 0.9 MILLIGRAM, QD
     Route: 065
     Dates: start: 20170318, end: 20170318
  40. PROPACETAMOL [Concomitant]
     Active Substance: PROPACETAMOL
     Dosage: 1 UNK, QD
     Route: 065
     Dates: start: 20170302, end: 20170306
  41. RANITIDINE. [Concomitant]
     Active Substance: RANITIDINE
     Dosage: 40 MILLIGRAM, QD
     Route: 065
     Dates: start: 20170403, end: 20170403
  42. TEICOPLANIN [Concomitant]
     Active Substance: TEICOPLANIN
     Dosage: 400 MILLIGRAM, QD
     Route: 065
     Dates: start: 20170307, end: 20170307
  43. FILGRASTIM [Suspect]
     Active Substance: FILGRASTIM
     Dosage: UNK, QD (75)
     Route: 065
     Dates: start: 20170304, end: 20170305
  44. AMOXICILLIN. [Concomitant]
     Active Substance: AMOXICILLIN
     Dosage: 4 UNK, QD
     Route: 065
     Dates: start: 20170324, end: 20170330
  45. CALCIUM FOLINATE [Concomitant]
     Active Substance: LEUCOVORIN CALCIUM
     Dosage: 84 MILLIGRAM, QD
     Route: 065
     Dates: start: 20170324, end: 20170327
  46. CISPLATIN. [Concomitant]
     Active Substance: CISPLATIN
     Dosage: 150 MILLIGRAM, QD
     Route: 065
     Dates: start: 20170330, end: 20170330
  47. OLOPATADINE. [Concomitant]
     Active Substance: OLOPATADINE
     Indication: PRODUCT USED FOR UNKNOWN INDICATION
     Dosage: UNK, QD
     Route: 065
     Dates: start: 20170315
  48. RANITIDINE. [Concomitant]
     Active Substance: RANITIDINE
     Indication: PRODUCT USED FOR UNKNOWN INDICATION
     Dosage: 40 MILLIGRAM, QD
     Route: 065
     Dates: start: 20170330, end: 20170330
  49. TRIPTORELIN [Concomitant]
     Active Substance: TRIPTORELIN
     Indication: PRODUCT USED FOR UNKNOWN INDICATION
     Dosage: 3.75 MILLIGRAM, QD
     Route: 065
     Dates: start: 20170321, end: 20170321
  50. FILGRASTIM [Suspect]
     Active Substance: FILGRASTIM
     Dosage: UNK, QD (75)
     Route: 065
     Dates: start: 20170306, end: 20170307
  51. CALCIUM FOLINATE [Concomitant]
     Active Substance: LEUCOVORIN CALCIUM
     Dosage: 84 MILLIGRAM, QD
     Route: 065
     Dates: start: 20170314, end: 20170315
  52. DEXAMETHASONE. [Concomitant]
     Active Substance: DEXAMETHASONE
     Indication: PRODUCT USED FOR UNKNOWN INDICATION
     Dosage: 1 UNK, QD
     Route: 065
     Dates: start: 20170330, end: 20170331
  53. GRANISETRON [Concomitant]
     Active Substance: GRANISETRON
     Dosage: 3 MILLIGRAM, QD
     Route: 065
     Dates: start: 20170318, end: 20170318
  54. MANNITOL. [Concomitant]
     Active Substance: MANNITOL
     Indication: PRODUCT USED FOR UNKNOWN INDICATION
     Dosage: 278 UNK, QD
     Route: 065
     Dates: start: 20170330, end: 20170330
  55. NYSTATIN. [Concomitant]
     Active Substance: NYSTATIN
     Indication: PRODUCT USED FOR UNKNOWN INDICATION
     Dosage: UNK, QD
     Route: 065
     Dates: start: 20170330
  56. ONDANSETRON [Concomitant]
     Active Substance: ONDANSETRON
     Dosage: 8 MILLIGRAM, QD
     Route: 065
     Dates: start: 20170331, end: 20170331
  57. PIPERACILLIN. [Concomitant]
     Active Substance: PIPERACILLIN SODIUM
     Indication: PRODUCT USED FOR UNKNOWN INDICATION
     Dosage: 8.6 UNK, QD
     Route: 065
     Dates: start: 20170302, end: 20170302
  58. PIPERACILLIN. [Concomitant]
     Active Substance: PIPERACILLIN SODIUM
     Dosage: 8.6 UNK, QD
     Route: 065
     Dates: start: 20170303, end: 20170306
  59. PROPACETAMOL [Concomitant]
     Active Substance: PROPACETAMOL
     Dosage: 1 UNK, QD
     Route: 065
     Dates: start: 20170322, end: 20170322
  60. SODIUM CHLORIDE. [Concomitant]
     Active Substance: SODIUM CHLORIDE
     Dosage: 8.5 UNK, QD
     Route: 065
     Dates: start: 20170317, end: 20170317
  61. SODIUM CHLORIDE. [Concomitant]
     Active Substance: SODIUM CHLORIDE
     Dosage: 8.5 UNK, QD
     Route: 065
     Dates: start: 20170311, end: 20170311
  62. URSODEOXYCHOLIC ACID [Concomitant]
     Active Substance: URSODIOL
     Dosage: 200 MILLIGRAM, QD
     Route: 065
     Dates: start: 20170324, end: 20170324
  63. FILGRASTIM [Suspect]
     Active Substance: FILGRASTIM
     Dosage: UNK, QD (75)
     Route: 065
     Dates: start: 20170303, end: 20170303
  64. CALCIUM FOLINATE [Concomitant]
     Active Substance: LEUCOVORIN CALCIUM
     Dosage: 42 MILLIGRAM, QD
     Route: 065
     Dates: start: 20170314, end: 20170315
  65. CEFAZOLIN [Concomitant]
     Active Substance: CEFAZOLIN
     Indication: PRODUCT USED FOR UNKNOWN INDICATION
     Dosage: 2 UNK, QD
     Route: 065
     Dates: start: 20170329, end: 20170329
  66. CISPLATIN. [Concomitant]
     Active Substance: CISPLATIN
     Indication: PRODUCT USED FOR UNKNOWN INDICATION
     Dosage: 16 MILLIGRAM, QD
     Route: 065
     Dates: start: 20170330, end: 20170330
  67. DEXRAZOXANE. [Concomitant]
     Active Substance: DEXRAZOXANE
     Indication: PRODUCT USED FOR UNKNOWN INDICATION
     Dosage: 360 MILLIGRAM
     Route: 065
     Dates: start: 20170330, end: 20170402
  68. FUROSEMIDE. [Concomitant]
     Active Substance: FUROSEMIDE
     Dosage: 1 UNK, QD
     Route: 065
     Dates: start: 20170331, end: 20170331
  69. METHOTREXATE. [Concomitant]
     Active Substance: METHOTREXATE
     Dosage: 2 UNK, QD
     Route: 065
     Dates: start: 20170311, end: 20170311
  70. ONDANSETRON [Concomitant]
     Active Substance: ONDANSETRON
     Dosage: 0.9 MILLIGRAM, QD
     Route: 065
     Dates: start: 20170311, end: 20170311
  71. PALONOSETRON. [Concomitant]
     Active Substance: PALONOSETRON HYDROCHLORIDE
     Dosage: 1 MILLIGRAM, QD
     Route: 065
     Dates: start: 20170430, end: 20170430
  72. PENTAMIDINE ISETHIONATE. [Concomitant]
     Active Substance: PENTAMIDINE ISETHIONATE
     Dosage: 1 UNK, QD
     Dates: start: 20170324, end: 20170324
  73. POTASSIUM CHLORIDE. [Concomitant]
     Active Substance: POTASSIUM CHLORIDE
     Indication: PRODUCT USED FOR UNKNOWN INDICATION
     Dosage: 20 UNK, QD
     Route: 065
     Dates: start: 20170311, end: 20170311
  74. SODIUM BICARBONATE. [Concomitant]
     Active Substance: SODIUM BICARBONATE
     Dosage: 48 UNK, QD
     Route: 065
     Dates: start: 20170318, end: 20170318
  75. SODIUM CHLORIDE. [Concomitant]
     Active Substance: SODIUM CHLORIDE
     Indication: PRODUCT USED FOR UNKNOWN INDICATION
     Dosage: 8.5 UNK, QD
     Route: 065
     Dates: start: 20170329, end: 20170329
  76. TEICOPLANIN [Concomitant]
     Active Substance: TEICOPLANIN
     Indication: PRODUCT USED FOR UNKNOWN INDICATION
     Dosage: 400 MILLIGRAM, QD
     Route: 065
     Dates: start: 20170305, end: 20170305
  77. CALCIUM FOLINATE [Concomitant]
     Active Substance: LEUCOVORIN CALCIUM
     Dosage: 63 MILLIGRAM, QD
     Route: 065
     Dates: start: 20170316, end: 20170316
  78. FUROSEMIDE. [Concomitant]
     Active Substance: FUROSEMIDE
     Dosage: 1 UNK, QD
     Route: 065
     Dates: start: 20170317, end: 20170317
  79. MAGNESIUM SULFATE. [Concomitant]
     Active Substance: MAGNESIUM SULFATE
     Indication: PRODUCT USED FOR UNKNOWN INDICATION
     Dosage: 10 UNK, QD
     Route: 065
     Dates: start: 20170329, end: 20170329
  80. METHOTREXATE. [Concomitant]
     Active Substance: METHOTREXATE
     Dosage: 2 UNK, QD
     Route: 065
     Dates: start: 20170318, end: 20170318
  81. PIPERACILLIN. [Concomitant]
     Active Substance: PIPERACILLIN SODIUM
     Dosage: 8.6 UNK, QD
     Route: 065
     Dates: start: 20170307, end: 20170307
  82. POTASSIUM CHLORIDE. [Concomitant]
     Active Substance: POTASSIUM CHLORIDE
     Dosage: 30 UNK, QD
     Route: 065
     Dates: start: 20170312, end: 20170324
  83. POVIDONE?IODINE. [Concomitant]
     Active Substance: POVIDONE-IODINE
     Indication: PRODUCT USED FOR UNKNOWN INDICATION
     Dosage: 1 UNK, QD
     Route: 065
     Dates: start: 20170218
  84. RANITIDINE. [Concomitant]
     Active Substance: RANITIDINE
     Dosage: 80 MILLIGRAM, QD
     Route: 065
     Dates: start: 20170331, end: 20170402
  85. THIOSULFATE [Concomitant]
     Indication: PRODUCT USED FOR UNKNOWN INDICATION
     Dosage: 12.5 UNK, QD
     Route: 065
     Dates: start: 20170330, end: 20170330
  86. URSODEOXYCHOLIC ACID [Concomitant]
     Active Substance: URSODIOL
     Indication: PRODUCT USED FOR UNKNOWN INDICATION
     Dosage: 200 MILLIGRAM, QD
     Route: 065
     Dates: start: 20170321, end: 20170321

REACTIONS (8)
  - Anaemia [Recovered/Resolved]
  - Headache [Recovered/Resolved]
  - Pyrexia [Recovered/Resolved]
  - Haematemesis [Recovered/Resolved]
  - Hypersensitivity [Recovered/Resolved]
  - Epistaxis [Recovered/Resolved]
  - Platelet count decreased [Recovered/Resolved]
  - Blood pressure increased [Recovered/Resolved]

NARRATIVE: CASE EVENT DATE: 20170405
